FAERS Safety Report 4756943-2 (Version None)
Quarter: 2005Q3

REPORT INFORMATION
  Report Type: 
  Country: None (occurrence: None)
  Receive Date: 20050830
  Receipt Date: 20050310
  Transmission Date: 20060218
  Serious: Yes (Hospitalization, Disabling)
  Sender: FDA-Public Use
  Company Number: US-MERCK-0503USA02224

PATIENT
  Age: 56 Year
  Sex: Male
  Weight: 73 kg

DRUGS (7)
  1. VIOXX [Suspect]
     Indication: TENDONITIS
     Route: 048
     Dates: start: 19991101, end: 20001201
  2. VIOXX [Suspect]
     Indication: CHEST PAIN
     Route: 048
     Dates: start: 19991101, end: 20001201
  3. PLAVIX [Concomitant]
     Indication: CEREBROVASCULAR ACCIDENT PROPHYLAXIS
     Route: 048
     Dates: start: 20000601
  4. CELEXA [Concomitant]
     Route: 065
  5. FLEXERIL [Concomitant]
     Route: 065
  6. KLONOPIN [Concomitant]
     Route: 065
  7. BAYCOL [Concomitant]
     Route: 065

REACTIONS (13)
  - AFFECTIVE DISORDER [None]
  - BACK PAIN [None]
  - CEREBRAL ARTERY OCCLUSION [None]
  - DEPRESSION [None]
  - DRUG HYPERSENSITIVITY [None]
  - FALL [None]
  - HEAD INJURY [None]
  - NEUROPATHIC PAIN [None]
  - PERIPHERAL OCCLUSIVE DISEASE [None]
  - RESPIRATORY FAILURE [None]
  - RIB FRACTURE [None]
  - SKIN ULCER [None]
  - WEIGHT DECREASED [None]
